FAERS Safety Report 7489183-7 (Version None)
Quarter: 2011Q2

REPORT INFORMATION
  Report Type: 
  Country: None (occurrence: None)
  Receive Date: 20110518
  Receipt Date: 20110503
  Transmission Date: 20111010
  Serious: Yes (Hospitalization)
  Sender: FDA-Public Use
  Company Number: US-US-EMD SERONO, INC.-7051702

PATIENT
  Sex: Female
  Weight: 87 kg

DRUGS (24)
  1. REBIF [Suspect]
     Indication: PRODUCT USED FOR UNKNOWN INDICATION
     Route: 058
     Dates: start: 20040917, end: 20100731
  2. VALIUM [Concomitant]
  3. BENAZEPRIL HYDROCHLORIDE [Concomitant]
  4. NORVASC [Concomitant]
  5. SUMATRIPTAN SUCCINATE [Concomitant]
  6. CYANOCOBALAMIN [Concomitant]
  7. MORPHINE SULFATE PROLONGED=RELEASE CAPSULE [Concomitant]
     Indication: PAIN
     Route: 048
  8. MS CONTIN [Concomitant]
     Indication: PAIN
     Route: 048
  9. ADVAIR DISKUS 100/50 [Concomitant]
  10. SYNTHROID [Concomitant]
  11. SPIRIVA [Concomitant]
  12. BENZONATATE [Concomitant]
  13. LEXAPRO [Concomitant]
  14. CLONAZEPAM [Concomitant]
  15. BONIVA [Concomitant]
  16. VENTOLIN [Concomitant]
  17. HEPARIN LOCK FLUSH [Concomitant]
  18. REMERON [Concomitant]
  19. MORPHINE SULFATE PROLONGED=RELEASE CAPSULE [Concomitant]
     Route: 048
     Dates: start: 19970101
  20. POTASSIUM CITRATE [Concomitant]
  21. SINGULAIR [Concomitant]
  22. ABILIFY [Concomitant]
  23. LISINOPRIL [Concomitant]
  24. TOPROL-XL [Concomitant]

REACTIONS (3)
  - RENAL IMPAIRMENT [None]
  - ACCIDENTAL OVERDOSE [None]
  - LIVER INJURY [None]
